FAERS Safety Report 24009493 (Version 5)
Quarter: 2025Q1

REPORT INFORMATION
  Report Type: Report from Study
  Country: CN (occurrence: CN)
  Receive Date: 20240625
  Receipt Date: 20250107
  Transmission Date: 20250409
  Serious: Yes (Death, Hospitalization)
  Sender: NOVARTIS
  Company Number: CN-002147023-NVSC2024CN129888

PATIENT
  Age: 38 Year
  Sex: Female
  Weight: 67.7 kg

DRUGS (7)
  1. MEKINIST [Suspect]
     Active Substance: TRAMETINIB DIMETHYL SULFOXIDE
     Indication: Lung adenocarcinoma stage IV
     Dosage: 2 MG, Q3W (2 MG ONCE DAILY (QD))
     Route: 048
     Dates: start: 20220706, end: 20240605
  2. MEKINIST [Suspect]
     Active Substance: TRAMETINIB DIMETHYL SULFOXIDE
     Indication: Metastases to lung
     Dosage: 2 MG, Q3W (2 MG ONCE DAILY (QD))
     Route: 048
     Dates: start: 20220706, end: 20240605
  3. MEKINIST [Suspect]
     Active Substance: TRAMETINIB DIMETHYL SULFOXIDE
     Indication: Metastases to bone
     Dosage: 2 MG, Q3W (2 MG ONCE DAILY (QD))
     Route: 048
     Dates: start: 20220706, end: 20240605
  4. MEKINIST [Suspect]
     Active Substance: TRAMETINIB DIMETHYL SULFOXIDE
     Indication: Metastases to pleura
     Dosage: 2 MG, Q3W (2 MG ONCE DAILY (QD))
     Route: 048
     Dates: start: 20220706, end: 20240605
  5. MEKINIST [Suspect]
     Active Substance: TRAMETINIB DIMETHYL SULFOXIDE
     Indication: BRAF V600E mutation positive
  6. COENZYME Q10 [Concomitant]
     Active Substance: DIETARY SUPPLEMENT\UBIDECARENONE
     Indication: Troponin increased
     Dosage: 10 MG, TID
     Route: 048
     Dates: start: 20240516
  7. TRIMETAZIDINE [Concomitant]
     Active Substance: TRIMETAZIDINE
     Indication: Troponin increased
     Dosage: 20 MG, TID
     Route: 048
     Dates: start: 20240516

REACTIONS (8)
  - Cerebral infarction [Fatal]
  - Urinary retention [Fatal]
  - Dyschezia [Fatal]
  - Dysarthria [Fatal]
  - Muscular weakness [Fatal]
  - Cerebral artery thrombosis [Fatal]
  - Myocarditis [Not Recovered/Not Resolved]
  - Influenza [Unknown]

NARRATIVE: CASE EVENT DATE: 20240425
